FAERS Safety Report 12037224 (Version 1)
Quarter: 2016Q1

REPORT INFORMATION
  Report Type: Spontaneous
  Country: None (occurrence: None)
  Receive Date: 20160205
  Receipt Date: 20160205
  Transmission Date: 20160526
  Serious: No
  Sender: FDA-Public Use
  Company Number: None

PATIENT
  Age: 75 Year
  Sex: Female
  Weight: 63.05 kg

DRUGS (1)
  1. CARBIDOPA-LEVODOPA [Suspect]
     Active Substance: CARBIDOPA\LEVODOPA
     Indication: PARKINSON^S DISEASE
     Dosage: 1 1/2  3 X DAY
     Route: 048
     Dates: start: 20160101, end: 20160203

REACTIONS (2)
  - Drug effect decreased [None]
  - Product substitution issue [None]

NARRATIVE: CASE EVENT DATE: 20160101
